FAERS Safety Report 14623553 (Version 2)
Quarter: 2021Q2

REPORT INFORMATION
  Report Type: Spontaneous
  Country: GB (occurrence: GB)
  Receive Date: 20180312
  Receipt Date: 20210608
  Transmission Date: 20210716
  Serious: Yes (Hospitalization, Disabling, Other)
  Sender: FDA-Public Use
  Company Number: GB-AUROBINDO-AUR-APL-2009-00156

PATIENT
  Age: 18 Year
  Sex: Female

DRUGS (3)
  1. METRONIDAZOLE. [Suspect]
     Active Substance: METRONIDAZOLE
     Indication: PELVIC INFLAMMATORY DISEASE
     Dosage: 400 MILLIGRAM, 3 TIMES A DAY
     Route: 065
  2. OFLOXACIN. [Suspect]
     Active Substance: OFLOXACIN
     Indication: PELVIC INFLAMMATORY DISEASE
     Dosage: 400 MILLIGRAM, TWO TIMES A DAY
     Route: 065
  3. CO?AMOXICLAV [Concomitant]
     Active Substance: AMOXICILLIN\CLAVULANATE POTASSIUM
     Indication: URINARY TRACT INFECTION
     Dosage: UNK
     Route: 065

REACTIONS (25)
  - Blood urine present [Recovered/Resolved]
  - Psychotic disorder due to a general medical condition [Recovered/Resolved]
  - Paranoia [Recovered/Resolved]
  - Hallucination, auditory [Recovered/Resolved]
  - Areflexia [Recovered/Resolved]
  - Confusional state [Recovered/Resolved]
  - Extensor plantar response [Recovered/Resolved]
  - Delusion [Recovered/Resolved]
  - Aphasia [Recovered/Resolved]
  - Agitation [Recovered/Resolved]
  - Hyperreflexia [Recovered/Resolved]
  - Pyrexia [Recovered/Resolved]
  - Stupor [Recovered/Resolved]
  - Fear [Recovered/Resolved]
  - Muscular weakness [Recovered/Resolved]
  - White blood cell count decreased [Recovered/Resolved]
  - Delusion of reference [Recovered/Resolved]
  - Patient uncooperative [Recovered/Resolved]
  - Anxiety [Recovered/Resolved]
  - Immobile [Recovered/Resolved]
  - Persecutory delusion [Recovered/Resolved]
  - Depressed mood [Recovered/Resolved]
  - Negative thoughts [Recovered/Resolved]
  - Urine analysis abnormal [Recovered/Resolved]
  - Drug interaction [Recovered/Resolved]
